FAERS Safety Report 9395758 (Version 1)
Quarter: 2013Q3

REPORT INFORMATION
  Report Type: Spontaneous
  Country: US (occurrence: US)
  Receive Date: 20130711
  Receipt Date: 20130711
  Transmission Date: 20140515
  Serious: Yes (Hospitalization)
  Sender: FDA-Public Use
  Company Number: US-GILEAD-2013-0078810

PATIENT
  Sex: Female

DRUGS (3)
  1. LETAIRIS [Suspect]
     Indication: PRODUCT USED FOR UNKNOWN INDICATION
     Route: 048
     Dates: start: 20111024
  2. ADCIRCA [Concomitant]
  3. COUMADIN                           /00014802/ [Concomitant]

REACTIONS (2)
  - Thrombosis [Unknown]
  - Compression fracture [Unknown]
